FAERS Safety Report 23062940 (Version 1)
Quarter: 2023Q4

REPORT INFORMATION
  Report Type: Spontaneous
  Country: US (occurrence: None)
  Receive Date: 20231012
  Receipt Date: 20231012
  Transmission Date: 20240110
  Serious: Yes (Death)
  Sender: FDA-Public Use
  Company Number: None

PATIENT
  Age: 62 Year
  Sex: Female

DRUGS (1)
  1. ETOPOSIDE [Suspect]
     Active Substance: ETOPOSIDE
     Dosage: FREQUENCY : DAILY;?
     Dates: start: 20230910, end: 20231006

REACTIONS (1)
  - Death [None]

NARRATIVE: CASE EVENT DATE: 20231006
